FAERS Safety Report 9402853 (Version 2)
Quarter: 2013Q3

REPORT INFORMATION
  Report Type: Spontaneous
  Country: US (occurrence: US)
  Receive Date: 20130716
  Receipt Date: 20130719
  Transmission Date: 20140515
  Serious: No
  Sender: FDA-Public Use
  Company Number: US-009507513-1306USA009108

PATIENT
  Age: 26 Year
  Sex: 0

DRUGS (1)
  1. COPPERTONE ULTRAGUARD CONTINUOUS SPRAY SPF 30 [Suspect]
     Indication: PRODUCT USED FOR UNKNOWN INDICATION
     Dosage: UNK, UNKNOWN
     Route: 061
     Dates: start: 20130529

REACTIONS (1)
  - Rash papular [Not Recovered/Not Resolved]
